FAERS Safety Report 13934909 (Version 1)
Quarter: 2017Q3

REPORT INFORMATION
  Report Type: Spontaneous
  Country: NL (occurrence: NL)
  Receive Date: 20170905
  Receipt Date: 20170905
  Transmission Date: 20171127
  Serious: Yes (Other)
  Sender: FDA-Public Use
  Company Number: NL-APOTEX-2017AP017583

PATIENT
  Sex: Male

DRUGS (1)
  1. PAROXETINE. [Suspect]
     Active Substance: PAROXETINE
     Indication: PRODUCT USED FOR UNKNOWN INDICATION
     Dosage: UNK UNK, QD
     Route: 064

REACTIONS (7)
  - Respiratory arrest [Unknown]
  - Foetal exposure during pregnancy [Unknown]
  - Coagulation disorder neonatal [Unknown]
  - Subdural haemorrhage [Unknown]
  - Congenital renal disorder [Unknown]
  - Face presentation [Unknown]
  - Renal tubular acidosis [Unknown]
